FAERS Safety Report 4443617-0 (Version None)
Quarter: 2004Q3

REPORT INFORMATION
  Report Type: 
  Country: None (occurrence: None)
  Receive Date: 20040908
  Receipt Date: 20040830
  Transmission Date: 20050211
  Serious: Yes (Hospitalization)
  Sender: FDA-Public Use
  Company Number: VE-BRISTOL-MYERS SQUIBB COMPANY-12686390

PATIENT
  Age: 12 Year
  Sex: Male

DRUGS (1)
  1. METHOTREXATE [Suspect]
     Indication: DERMATOMYOSITIS

REACTIONS (1)
  - HISTIOCYTOSIS HAEMATOPHAGIC [None]
